FAERS Safety Report 8022982 (Version 4)
Quarter: 2012Q4

REPORT INFORMATION
  Report Type: 
  Country: US (occurrence: US)
  Receive Date: 20110706
  Receipt Date: 20121204
  Transmission Date: 20130627
  Serious: Yes (Death)
  Sender: FDA-Public Use
  Company Number: US-BAYER-2011-055457

PATIENT
  Age: 68 Year
  Sex: Male
  Weight: 72.56 kg

DRUGS (1)
  1. NEXAVAR [Suspect]
     Indication: RENAL CELL CARCINOMA
     Dosage: 400 mg, BID
     Route: 048
     Dates: start: 20100405, end: 20110130

REACTIONS (6)
  - Cardiac disorder [Fatal]
  - Feeling cold [Fatal]
  - Fatigue [Fatal]
  - Chills [None]
  - Oropharyngeal pain [None]
  - Pyrexia [None]
